FAERS Safety Report 5642283-6 (Version None)
Quarter: 2008Q1

REPORT INFORMATION
  Report Type: 
  Country: None (occurrence: None)
  Receive Date: 20080226
  Receipt Date: 20080211
  Transmission Date: 20080703
  Serious: Yes (Other)
  Sender: FDA-Public Use
  Company Number: S08-UKI-00481-01

PATIENT
  Age: 58 Year
  Sex: Female

DRUGS (5)
  1. ESCITALOPRAM [Suspect]
     Indication: ANXIETY
     Dosage: 10 MG QD POR
     Route: 048
     Dates: start: 20080116, end: 20080123
  2. ESCITALOPRAM [Suspect]
     Indication: DEPRESSION
     Dosage: 10 MG QD POR
     Route: 048
     Dates: start: 20080116, end: 20080123
  3. DEPAKOTE [Suspect]
     Indication: BIPOLAR DISORDER
     Dosage: 1 G QD PO
     Route: 048
     Dates: start: 20080108
  4. MIRTAZAPINE [Suspect]
     Indication: ANXIETY
     Dosage: 45 MG QD PO
     Route: 048
     Dates: start: 19940101
  5. MIRTAZAPINE [Suspect]
     Indication: DEPRESSION
     Dosage: 45 MG QD PO
     Route: 048
     Dates: start: 19940101

REACTIONS (2)
  - FEELING ABNORMAL [None]
  - SUICIDAL IDEATION [None]
